FAERS Safety Report 11880252 (Version 1)
Quarter: 2015Q4

REPORT INFORMATION
  Report Type: Spontaneous
  Country: US (occurrence: None)
  Receive Date: 20151230
  Receipt Date: 20151230
  Transmission Date: 20160305
  Serious: Yes (Other)
  Sender: FDA-Public Use
  Company Number: None

PATIENT
  Age: 74 Year
  Sex: Male

DRUGS (1)
  1. XELODA [Suspect]
     Active Substance: CAPECITABINE
     Indication: COLON CANCER
     Dosage: TWICE DAILY FOR 14 DAYS THEN OFF FOR SEV
     Route: 048
     Dates: start: 201507

REACTIONS (3)
  - Stomatitis [None]
  - Tenderness [None]
  - Dysgeusia [None]

NARRATIVE: CASE EVENT DATE: 20151220
